FAERS Safety Report 24085682 (Version 2)
Quarter: 2024Q3

REPORT INFORMATION
  Report Type: Report from Study
  Country: US (occurrence: US)
  Receive Date: 20240712
  Receipt Date: 20240724
  Transmission Date: 20241016
  Serious: Yes (Hospitalization, Other)
  Sender: APELLIS PHARMACEUTICALS
  Company Number: US-APELLIS-01065

PATIENT

DRUGS (20)
  1. EMPAVELI [Suspect]
     Active Substance: PEGCETACOPLAN
     Indication: Paroxysmal nocturnal haemoglobinuria
     Dosage: 1080 MILLIGRAM, TWICE WEEKLY
     Route: 058
     Dates: start: 20211126
  2. EMPAVELI [Suspect]
     Active Substance: PEGCETACOPLAN
     Dosage: 1080 MILLIGRAM, TWICE WEEKLY
     Route: 058
     Dates: start: 20211126
  3. EMPAVELI [Suspect]
     Active Substance: PEGCETACOPLAN
     Dosage: 1080 MILLIGRAM, TWICE WEEKLY
     Route: 058
     Dates: start: 20211201
  4. EMPAVELI [Suspect]
     Active Substance: PEGCETACOPLAN
     Dosage: 1080 MILLIGRAM, QD FOR THREE DAYS
     Route: 058
     Dates: start: 20211031
  5. EMPAVELI [Suspect]
     Active Substance: PEGCETACOPLAN
     Dosage: 1080 MG ONCE DAILY FOR 3 CONSECUTIVE DAYS
     Route: 058
     Dates: start: 20221031, end: 20221102
  6. EMPAVELI [Suspect]
     Active Substance: PEGCETACOPLAN
     Dosage: 1080 MG S.C. EVERY 3 DAYS MAINTENANCE DOSE
     Route: 058
     Dates: start: 2022
  7. SOLIRIS [Concomitant]
     Active Substance: ECULIZUMAB
     Indication: Paroxysmal nocturnal haemoglobinuria
     Dosage: 600 MG WEEKLY FOR 4 DOSES, FOLLOWED BY A MAINTENANCE DOSAGE OF 900 MG EVERY 2 WEEKS
  8. SOLIRIS [Concomitant]
     Active Substance: ECULIZUMAB
     Dosage: 1200 MG ONCE EVERY 2 WEEK
  9. SOLIRIS [Concomitant]
     Active Substance: ECULIZUMAB
     Dosage: 600.000MG
     Dates: start: 2022
  10. DIPHENHYDRAMINE [Concomitant]
     Active Substance: DIPHENHYDRAMINE
     Indication: Product used for unknown indication
  11. MINERALS\VITAMINS [Concomitant]
     Active Substance: MINERALS\VITAMINS
     Indication: Product used for unknown indication
  12. TUMS [Concomitant]
     Active Substance: CALCIUM CARBONATE
     Indication: Product used for unknown indication
  13. VITAMIN B12 [Concomitant]
     Active Substance: CYANOCOBALAMIN
     Indication: Product used for unknown indication
  14. VITAMIN C [Concomitant]
     Active Substance: ASCORBIC ACID
     Indication: Product used for unknown indication
  15. VALIUM [Concomitant]
     Active Substance: DIAZEPAM
     Indication: Product used for unknown indication
  16. FOLIC ACID [Concomitant]
     Active Substance: FOLIC ACID
     Indication: Product used for unknown indication
  17. BENADRYL [Concomitant]
     Active Substance: DIPHENHYDRAMINE HYDROCHLORIDE
     Indication: Product used for unknown indication
  18. TYLENOL [Concomitant]
     Active Substance: ACETAMINOPHEN
     Indication: Product used for unknown indication
  19. LOVENOX [Concomitant]
     Active Substance: ENOXAPARIN SODIUM
     Indication: Product used for unknown indication
     Dosage: 40.000MG DAILY
     Route: 058
  20. LOVENOX [Concomitant]
     Active Substance: ENOXAPARIN SODIUM
     Dosage: 70 MG DAILY
     Route: 058

REACTIONS (15)
  - Premature separation of placenta [Recovered/Resolved]
  - Breakthrough haemolysis [Recovered/Resolved]
  - Haemolysis [Recovered/Resolved]
  - Hyperbilirubinaemia [Recovered/Resolved]
  - Haptoglobin decreased [Recovered/Resolved]
  - Cytopenia [Recovered/Resolved]
  - Foetal distress syndrome [Unknown]
  - Acute kidney injury [Unknown]
  - Premature labour [Recovered/Resolved]
  - Maternal exposure during pregnancy [Recovered/Resolved]
  - Haemoglobin decreased [Recovered/Resolved]
  - Blood lactate dehydrogenase increased [Recovered/Resolved]
  - Hypersensitivity [Recovered/Resolved]
  - Infusion site pain [Recovered/Resolved]
  - Infusion site pruritus [Recovered/Resolved]

NARRATIVE: CASE EVENT DATE: 20211201
